FAERS Safety Report 4361486-4 (Version None)
Quarter: 2004Q2

REPORT INFORMATION
  Report Type: 
  Country: None (occurrence: None)
  Receive Date: 20040521
  Receipt Date: 20030905
  Transmission Date: 20050107
  Serious: No
  Sender: FDA-Public Use
  Company Number: US-GLAXOSMITHKLINE-A0424756A

PATIENT
  Age: 38 Year
  Sex: Male

DRUGS (2)
  1. ZYBAN [Suspect]
     Dosage: 150MG UNKNOWN
     Route: 048
     Dates: start: 20030101
  2. VISTARIL [Concomitant]

REACTIONS (5)
  - ADVERSE DRUG REACTION [None]
  - FACE OEDEMA [None]
  - PRURITUS [None]
  - RASH [None]
  - URTICARIA [None]
